FAERS Safety Report 9797181 (Version 2)
Quarter: 2014Q1

REPORT INFORMATION
  Report Type: Spontaneous
  Country: US (occurrence: US)
  Receive Date: 20140106
  Receipt Date: 20140106
  Transmission Date: 20141002
  Serious: Yes (Other)
  Sender: FDA-Public Use
  Company Number: PHEH2013US001451

PATIENT
  Sex: Female

DRUGS (2)
  1. GLEEVEC [Suspect]
     Dosage: FOETAL DRUG EXPOSURE VIA FATHER
  2. VITAMINS NOS [Concomitant]

REACTIONS (2)
  - Abortion spontaneous [Unknown]
  - Exposure via father [Unknown]
